FAERS Safety Report 19585073 (Version 1)
Quarter: 2021Q3

REPORT INFORMATION
  Report Type: Other
  Country: CA (occurrence: CA)
  Receive Date: 20210721
  Receipt Date: 20210721
  Transmission Date: 20211014
  Serious: Yes (Hospitalization)
  Sender: FDA-Public Use
  Company Number: CA-CELLTRION INC.-2021CA009430

PATIENT

DRUGS (5)
  1. VINCRISTINE SULPHATE [Suspect]
     Active Substance: VINCRISTINE SULFATE
     Indication: PRODUCT USED FOR UNKNOWN INDICATION
     Dosage: 750 MG/M2, 1 EVERY 14 DAYS
     Route: 042
  2. PIPERACILLIN AND TAZOBACTAM [Concomitant]
     Active Substance: PIPERACILLIN SODIUM\TAZOBACTAM SODIUM
     Dosage: UNK
  3. PROCYTOX [Suspect]
     Active Substance: CYCLOPHOSPHAMIDE
     Indication: PRODUCT USED FOR UNKNOWN INDICATION
     Dosage: 1 MG/M2, 1 EVERY 14 DAYS
     Route: 042
  4. TRUXIMA [Suspect]
     Active Substance: RITUXIMAB-ABBS
     Indication: PRODUCT USED FOR UNKNOWN INDICATION
     Dosage: 375 MG/M2, 1 EVERY 14 DAYS
     Route: 042
  5. DOXORUBICIN [Suspect]
     Active Substance: DOXORUBICIN
     Indication: PRODUCT USED FOR UNKNOWN INDICATION
     Dosage: 50 MG/M2, 1 EVERY 14 DAYS
     Route: 042

REACTIONS (5)
  - Clostridium difficile colitis [Not Recovered/Not Resolved]
  - Colectomy [Not Recovered/Not Resolved]
  - Megacolon [Not Recovered/Not Resolved]
  - Pseudomembranous colitis [Not Recovered/Not Resolved]
  - Pyrexia [Not Recovered/Not Resolved]
